FAERS Safety Report 4348508-1 (Version None)
Quarter: 2004Q2

REPORT INFORMATION
  Report Type: 
  Country: None (occurrence: None)
  Receive Date: 20040427
  Receipt Date: 20040305
  Transmission Date: 20050107
  Serious: Yes (Other)
  Sender: FDA-Public Use
  Company Number: US-ROCHE-361127

PATIENT
  Age: 20 Year
  Sex: Female
  Weight: 52.2 kg

DRUGS (4)
  1. ACCUTANE [Suspect]
     Indication: ACNE
     Route: 048
     Dates: start: 20020815, end: 20030215
  2. PAXIL [Concomitant]
     Indication: DEPRESSION
     Route: 048
     Dates: start: 20020315, end: 20021221
  3. LEVOTHYROXINE [Concomitant]
     Indication: HYPOTHYROIDISM
     Route: 048
     Dates: start: 20020215
  4. DESOGEN [Concomitant]
     Route: 048

REACTIONS (10)
  - ANGER [None]
  - DEPRESSION [None]
  - EAR PAIN [None]
  - EPISTAXIS [None]
  - FATIGUE [None]
  - HEADACHE [None]
  - MANIA [None]
  - NAIL DISCOLOURATION [None]
  - NAIL DYSTROPHY [None]
  - PHARYNGOLARYNGEAL PAIN [None]
